FAERS Safety Report 6792488-6 (Version None)
Quarter: 2010Q2

REPORT INFORMATION
  Report Type: 
  Country: None (occurrence: None)
  Receive Date: 20100624
  Receipt Date: 20080808
  Transmission Date: 20101027
  Serious: Yes (Other)
  Sender: FDA-Public Use
  Company Number: US-PFIZER INC-2008067283

PATIENT
  Age: 72 Year
  Sex: Female

DRUGS (4)
  1. GLIBENCLAMIDE [Suspect]
     Indication: DIABETES MELLITUS
     Dates: start: 20080101, end: 20080101
  2. METFORMIN HCL [Suspect]
  3. PAXIL [Concomitant]
  4. GERITOL [Concomitant]

REACTIONS (2)
  - BLOOD GLUCOSE DECREASED [None]
  - WEIGHT INCREASED [None]
